FAERS Safety Report 5340169-8 (Version None)
Quarter: 2007Q2

REPORT INFORMATION
  Report Type: 
  Country: None (occurrence: None)
  Receive Date: 20070531
  Receipt Date: 20070528
  Transmission Date: 20071010
  Serious: Yes (Other)
  Sender: FDA-Public Use
  Company Number: A0653357A

PATIENT
  Sex: Female

DRUGS (1)
  1. AVANDIA [Suspect]

REACTIONS (2)
  - ANGIOPLASTY [None]
  - MACULAR OEDEMA [None]
